FAERS Safety Report 7645107-0 (Version None)
Quarter: 2011Q3

REPORT INFORMATION
  Report Type: 
  Country: None (occurrence: None)
  Receive Date: 20110729
  Receipt Date: 20110722
  Transmission Date: 20111222
  Serious: Yes (Other)
  Sender: FDA-Public Use
  Company Number: PHEH2010US03478

PATIENT
  Sex: Female

DRUGS (43)
  1. ZESTORETIC [Concomitant]
  2. CAPOZIDE FORTE [Concomitant]
  3. DARVOCET-N 50 [Concomitant]
  4. ALDACTAZIDE [Concomitant]
  5. ADVAIR DISKUS 100/50 [Concomitant]
  6. AVALIDE [Concomitant]
  7. ZESTRIL [Concomitant]
  8. ZELNORM [Suspect]
  9. ACTIFED [Concomitant]
  10. LINCOCIN [Concomitant]
  11. PANNAZ [Concomitant]
  12. FLONASE [Concomitant]
  13. MICARDIS HCT [Concomitant]
  14. LEXAPRO [Concomitant]
  15. PREVACID [Concomitant]
  16. REGLAN [Concomitant]
  17. MAXZIDE [Concomitant]
  18. XENICAL [Concomitant]
  19. BENICAR [Concomitant]
  20. ESGIC-PLUS [Concomitant]
  21. HYZAAR [Concomitant]
  22. LOTREL [Concomitant]
  23. CIPROFLOXACIN [Concomitant]
  24. TENORMIN [Concomitant]
  25. NORVASC [Concomitant]
  26. TENORETIC [Concomitant]
  27. TIAZAC [Concomitant]
  28. DURICEF [Concomitant]
  29. PROMETHAZINE [Concomitant]
  30. PRILOSEC [Concomitant]
  31. CLINORIL [Concomitant]
  32. CATAPRES                                /USA/ [Concomitant]
  33. ED A-HIST [Concomitant]
     Indication: NASAL CONGESTION
  34. LOTENSIN [Concomitant]
  35. ZANTAC [Concomitant]
  36. POTASSIUM CHLORIDE [Concomitant]
  37. SLOW-MAG [Concomitant]
  38. MEVACOR [Concomitant]
  39. K-TAB [Concomitant]
  40. NORFLEX [Concomitant]
     Indication: HEADACHE
  41. PAXIL [Concomitant]
  42. ACCUHIST LA [Concomitant]
  43. LOVASTATIN [Concomitant]

REACTIONS (14)
  - SINUS BRADYCARDIA [None]
  - DYSPNOEA [None]
  - CHRONIC HEPATITIS [None]
  - BLOOD GLUCOSE INCREASED [None]
  - HYPOAESTHESIA [None]
  - CHEST PAIN [None]
  - CHEST DISCOMFORT [None]
  - SINUS ARRHYTHMIA [None]
  - OBESITY [None]
  - MITRAL VALVE INCOMPETENCE [None]
  - INJURY [None]
  - TRICUSPID VALVE INCOMPETENCE [None]
  - HEMIPARESIS [None]
  - HYPOKALAEMIA [None]
